FAERS Safety Report 20479697 (Version 1)
Quarter: 2022Q1

REPORT INFORMATION
  Report Type: Spontaneous
  Country: US (occurrence: US)
  Receive Date: 20220216
  Receipt Date: 20220216
  Transmission Date: 20220423
  Serious: Yes (Life-Threatening, Hospitalization)
  Sender: FDA-Public Use
  Company Number: US-MYLANLABS-2022M1012379

PATIENT
  Age: 9 Decade
  Sex: Male

DRUGS (4)
  1. EPINEPHRINE [Suspect]
     Active Substance: EPINEPHRINE
     Indication: Hypotension
     Dosage: ESCALATING DOSES
     Route: 042
  2. CLONIDINE [Suspect]
     Active Substance: CLONIDINE
     Indication: Blood pressure increased
     Dosage: UNK
     Route: 065
  3. DOPAMINE HYDROCHLORIDE [Suspect]
     Active Substance: DOPAMINE HYDROCHLORIDE
     Indication: Hypotension
     Dosage: ESCALATING DOSES
     Route: 042
  4. NITROGLYCERIN [Concomitant]
     Active Substance: NITROGLYCERIN
     Indication: Chest discomfort
     Dosage: UNK
     Route: 060

REACTIONS (1)
  - Drug ineffective [Unknown]
